FAERS Safety Report 15806225 (Version 6)
Quarter: 2019Q3

REPORT INFORMATION
  Report Type: Spontaneous
  Country: US (occurrence: US)
  Receive Date: 20190110
  Receipt Date: 20190717
  Transmission Date: 20191004
  Serious: No
  Sender: FDA-Public Use
  Company Number: US-PFIZER INC-2019002202

PATIENT
  Age: 60 Year
  Sex: Female
  Weight: 77.98 kg

DRUGS (2)
  1. EMBEDA [Suspect]
     Active Substance: MORPHINE SULFATE\NALTREXONE HYDROCHLORIDE
     Indication: PAIN
     Dosage: 1 DF, 2X/DAY(1 CAPSULE IN THE MORNING AND 1 CAPSULE IN THE EVENING, 12 HOURS APART)
     Route: 048
  2. EMBEDA [Suspect]
     Active Substance: MORPHINE SULFATE\NALTREXONE HYDROCHLORIDE
     Dosage: (20-0.8 MG CAPSULES EVERY MONTH)

REACTIONS (4)
  - Product dose omission [Unknown]
  - Intentional product misuse [Unknown]
  - Hypokinesia [Unknown]
  - Product dispensing issue [Unknown]

NARRATIVE: CASE EVENT DATE: 20190101
